FAERS Safety Report 7792843-1 (Version None)
Quarter: 2011Q4

REPORT INFORMATION
  Report Type: 
  Country: None (occurrence: None)
  Receive Date: 20111003
  Receipt Date: 20110922
  Transmission Date: 20120403
  Serious: Yes (Hospitalization)
  Sender: FDA-Public Use
  Company Number: FR-GLAXOSMITHKLINE-B0736598B

PATIENT
  Sex: Female

DRUGS (13)
  1. PRIMPERAN TAB [Concomitant]
     Dates: start: 20110412, end: 20110419
  2. LAPATINIB [Suspect]
     Indication: BREAST CANCER
     Dosage: 1250MG PER DAY
     Route: 048
     Dates: start: 20110329
  3. TRAMADOL HCL [Concomitant]
     Dates: start: 20110415, end: 20110420
  4. LOVENOX [Concomitant]
     Dates: start: 20110418, end: 20110423
  5. CAPECITABINE [Suspect]
     Indication: BREAST CANCER
     Dosage: 2500MG TWICE PER DAY
     Route: 048
     Dates: start: 20110329
  6. ASPIRIN [Concomitant]
     Dates: start: 20110415, end: 20110422
  7. FLUCONAZOLE [Concomitant]
     Dates: start: 20110413, end: 20110419
  8. CALCIUM CARBONATE [Concomitant]
     Dates: start: 20110415, end: 20110419
  9. TIORFAN [Concomitant]
     Dates: start: 20110412, end: 20110419
  10. IMODIUM [Concomitant]
     Dates: start: 20110415, end: 20110416
  11. SANDOSTATIN [Concomitant]
     Dates: start: 20110415, end: 20110419
  12. SPASFON [Concomitant]
     Dates: start: 20110412, end: 20110423
  13. ALUMINUM HYDROXIDE AND MAGNESIUM TRISILICATE [Concomitant]
     Dates: start: 20110412, end: 20110413

REACTIONS (1)
  - FEBRILE NEUTROPENIA [None]
